FAERS Safety Report 21196417 (Version 1)
Quarter: 2022Q3

REPORT INFORMATION
  Report Type: Report from Study
  Country: CA (occurrence: CA)
  Receive Date: 20220810
  Receipt Date: 20220810
  Transmission Date: 20221026
  Serious: Yes (Other)
  Sender: FDA-Public Use
  Company Number: None

PATIENT
  Age: 35 Year
  Sex: Female

DRUGS (11)
  1. MYCOPHENOLATE MOFETIL [Suspect]
     Active Substance: MYCOPHENOLATE MOFETIL
     Indication: Vasculitis
     Route: 065
  2. ACTEMRA [Suspect]
     Active Substance: TOCILIZUMAB
     Indication: Giant cell arteritis
     Dosage: IN PRE-FILLED SYRINGE (DURATION 95)
     Route: 058
  3. PREDNISONE [Suspect]
     Active Substance: PREDNISONE
     Indication: Product used for unknown indication
     Route: 065
  4. CALCIUM [Concomitant]
     Active Substance: CALCIUM
  5. DESOXIMETASONE [Concomitant]
     Active Substance: DESOXIMETASONE
  6. JANUVIA [Concomitant]
     Active Substance: SITAGLIPTIN PHOSPHATE
     Route: 048
  7. PANTOPRAZOLE [Concomitant]
     Active Substance: PANTOPRAZOLE
  8. PERINDOPRIL [Concomitant]
     Active Substance: PERINDOPRIL
  9. RISEDRONATE SODIUM [Concomitant]
     Active Substance: RISEDRONATE SODIUM
  10. ACTEMRA [Suspect]
     Active Substance: TOCILIZUMAB
     Indication: Giant cell arteritis
     Dosage: 1 EVERY 2 WEEKS, IN PRE-FILLED SYRINGE (DURATION 95)
     Route: 058
  11. ACTEMRA [Suspect]
     Active Substance: TOCILIZUMAB
     Indication: Giant cell arteritis
     Dosage: 1 EVERY 1 WEEKS, IN PRE-FILLED SYRINGE (DURATION 95)
     Route: 058

REACTIONS (1)
  - Toothache [Unknown]
